FAERS Safety Report 6567567-9 (Version None)
Quarter: 2010Q1

REPORT INFORMATION
  Report Type: 
  Country: None (occurrence: None)
  Receive Date: 20100202
  Receipt Date: 20100125
  Transmission Date: 20100710
  Serious: Yes (Other)
  Sender: FDA-Public Use
  Company Number: US-JNJFOC-20060906221

PATIENT
  Sex: Female

DRUGS (3)
  1. RISPERDAL [Suspect]
     Indication: BIPOLAR DISORDER
  2. RISPERDAL [Suspect]
     Indication: POST-TRAUMATIC STRESS DISORDER
  3. RISPERDAL [Suspect]
     Indication: PARANOIA

REACTIONS (3)
  - DIABETES MELLITUS [None]
  - DIABETIC NEUROPATHY [None]
  - HYPERGLYCAEMIA [None]
